FAERS Safety Report 4599802-0 (Version None)
Quarter: 2005Q1

REPORT INFORMATION
  Report Type: 
  Country: None (occurrence: None)
  Receive Date: 20050303
  Receipt Date: 20050223
  Transmission Date: 20050727
  Serious: Yes (Hospitalization)
  Sender: FDA-Public Use
  Company Number: TPA2005A00218

PATIENT
  Age: 51 Year
  Sex: Female
  Weight: 120.2032 kg

DRUGS (7)
  1. ACTOS [Suspect]
     Indication: DIABETES MELLITUS NON-INSULIN-DEPENDENT
     Dosage: 30  MG, 1 IN 1 D, PER ORAL
     Route: 048
     Dates: start: 20030223
  2. HUMALOG (INSULIN LISPRO) (25 IU(INTERNATIONAL UNIT)) [Concomitant]
  3. LANTUS (INSULIN GLARGINE) (25 IU (INTERNATIONAL UNIT)) [Concomitant]
  4. LEXAPRO (ESCITALOPRAM OXALATE) (10 MILLIGRAM) [Concomitant]
  5. DIOVAN (VALSARTAN) (160 MILLIGRAM) [Concomitant]
  6. ATENOLOL (ATENOLOL) (50 MIILIGRAM) [Concomitant]
  7. RITALIN SR (METHYPHENIDATE HYDROCHLORIDE) (20 MILLIGRAM) [Concomitant]

REACTIONS (4)
  - ARTHROPOD BITE [None]
  - PNEUMONIA MYCOPLASMAL [None]
  - SEPSIS [None]
  - STAPHYLOCOCCAL INFECTION [None]
